FAERS Safety Report 5523930-6 (Version None)
Quarter: 2007Q4

REPORT INFORMATION
  Report Type: 
  Country: None (occurrence: None)
  Receive Date: 20071121
  Receipt Date: 20071114
  Transmission Date: 20080405
  Serious: Yes (Hospitalization, Other)
  Sender: FDA-Public Use
  Company Number: JP-ABBOTT-07P-087-0425129-00

PATIENT
  Age: 67 Year
  Sex: Female

DRUGS (7)
  1. CLARITHROMYCIN [Suspect]
     Indication: MYCOBACTERIUM ABSCESSUS INFECTION
     Dosage: NOT REPORTED
  2. CLARITHROMYCIN [Suspect]
     Dosage: NOT REPORTED
  3. CLARITHROMYCIN [Suspect]
     Dosage: NOT REPORTED
  4. RIFAMPICIN [Concomitant]
     Indication: MYCOBACTERIUM ABSCESSUS INFECTION
     Dosage: NOT REPORTED
  5. ETHAMBUTOL HCL [Concomitant]
     Indication: MYCOBACTERIUM ABSCESSUS INFECTION
     Dosage: NOT REPORTED
  6. FAROPENEM SODIUM HYDRATE [Concomitant]
     Indication: MYCOBACTERIUM ABSCESSUS INFECTION
     Dosage: NOT REPORTED
  7. IMIPENEM HYDRATE/CILASTATIN SODIUM [Concomitant]
     Indication: MYCOBACTERIUM ABSCESSUS INFECTION
     Dosage: NOT REPORTED

REACTIONS (3)
  - DIARRHOEA [None]
  - MYCOBACTERIUM ABSCESSUS INFECTION [None]
  - RASH [None]
